FAERS Safety Report 5711525-0 (Version None)
Quarter: 2008Q2

REPORT INFORMATION
  Report Type: 
  Country: None (occurrence: None)
  Receive Date: 20080415
  Receipt Date: 20080402
  Transmission Date: 20081010
  Serious: Yes (Hospitalization)
  Sender: FDA-Public Use
  Company Number: 107#08#2008-01921

PATIENT
  Age: 65 Year
  Sex: Male

DRUGS (2)
  1. AMIODARONE HCL [Suspect]
     Indication: ATRIAL FIBRILLATION
     Dosage: 2 TABLETS OF 200 MG THREE TIMES DAILY (1200 MG); WAS TAPERED TO 200 MG ONCE A DAY ORAL
     Route: 048
  2. LANOXIN(TABLETS) (DIGOXIN) [Concomitant]

REACTIONS (6)
  - BLOOD ALBUMIN DECREASED [None]
  - CONDITION AGGRAVATED [None]
  - COUGH [None]
  - HYPOPROTEINAEMIA [None]
  - PLEURAL EFFUSION [None]
  - WHEEZING [None]
